FAERS Safety Report 20991978 (Version 1)
Quarter: 2022Q2

REPORT INFORMATION
  Report Type: Other
  Country: US (occurrence: None)
  Receive Date: 20220622
  Receipt Date: 20220622
  Transmission Date: 20220721
  Serious: Yes (Other)
  Sender: FDA-Public Use
  Company Number: US-ROCHE-3119441

PATIENT
  Sex: Male

DRUGS (1)
  1. XELODA [Suspect]
     Active Substance: CAPECITABINE
     Indication: Gastric cancer
     Dosage: TAKE 2 TABLETS BY MOUTH TWICE A DAY FOR 14 DAYS ON, 7 DAYS OFF
     Route: 048

REACTIONS (2)
  - Neoplasm malignant [Unknown]
  - Night sweats [Unknown]
